FAERS Safety Report 7414517-9 (Version None)
Quarter: 2011Q2

REPORT INFORMATION
  Report Type: 
  Country: None (occurrence: None)
  Receive Date: 20110414
  Receipt Date: 20110406
  Transmission Date: 20111010
  Serious: Yes (Other)
  Sender: FDA-Public Use
  Company Number: JP-B.I. PHARMACEUTICALS,INC./RIDGEFIELD-2011-DE-01633GD

PATIENT
  Age: 74 Year
  Sex: Male

DRUGS (2)
  1. TIOTROPIUM [Suspect]
     Indication: CHRONIC OBSTRUCTIVE PULMONARY DISEASE
     Dates: start: 20100501
  2. FLUTICASONE PROPIONATE W/SALMETEROL [Suspect]
     Indication: CHRONIC OBSTRUCTIVE PULMONARY DISEASE
     Route: 055
     Dates: start: 20100501

REACTIONS (4)
  - PULMONARY NECROSIS [None]
  - WEIGHT DECREASED [None]
  - BRONCHOPULMONARY ASPERGILLOSIS [None]
  - DECREASED APPETITE [None]
